FAERS Safety Report 16608630 (Version 1)
Quarter: 2019Q3

REPORT INFORMATION
  Report Type: Spontaneous
  Country: US (occurrence: US)
  Receive Date: 20190722
  Receipt Date: 20190722
  Transmission Date: 20191004
  Serious: No
  Sender: FDA-Public Use
  Company Number: US-PFIZER INC-2019308913

PATIENT
  Sex: Male

DRUGS (4)
  1. MARINOL [Suspect]
     Active Substance: DRONABINOL
     Dosage: UNK
     Route: 048
  2. PREVACID [Concomitant]
     Active Substance: LANSOPRAZOLE
     Dosage: UNK
  3. GABAPENTIN. [Suspect]
     Active Substance: GABAPENTIN
     Dosage: 100 MG, 1X/DAY (100 MG CAPSULE; TAKE 1 CAPSULE BY MOUTH NIGHTLY DISPENSE: 30 CAPSULE, REFILLS: 11)
     Route: 048
  4. LIPITOR [Suspect]
     Active Substance: ATORVASTATIN CALCIUM
     Dosage: UNK

REACTIONS (9)
  - Mobility decreased [Unknown]
  - Bone pain [Unknown]
  - Musculoskeletal pain [Unknown]
  - Arthralgia [Unknown]
  - Pain [Unknown]
  - Gastrointestinal disorder [Recovered/Resolved]
  - Pain in extremity [Unknown]
  - Musculoskeletal discomfort [Unknown]
  - Drug hypersensitivity [Unknown]
